FAERS Safety Report 4804312-9 (Version None)
Quarter: 2005Q4

REPORT INFORMATION
  Report Type: 
  Country: None (occurrence: None)
  Receive Date: 20051017
  Receipt Date: 20051005
  Transmission Date: 20060501
  Serious: Yes (Other)
  Sender: FDA-Public Use
  Company Number: CHNY2005CA01868

PATIENT
  Age: 38 Year
  Sex: Male

DRUGS (2)
  1. HABITROL            (NICOTINE) TRANS-THERAPEUTIC-SYSTEM [Suspect]
     Indication: SMOKING CESSATION THERAPY
     Dosage: SEE UNAGE
     Route: 062
     Dates: start: 20050930, end: 20051004
  2. HABITROL            (NICOTINE) TRANS-THERAPEUTIC-SYSTEM [Suspect]
     Indication: SMOKING CESSATION THERAPY
     Dosage: SEE UNAGE
     Route: 062
     Dates: start: 20050923

REACTIONS (1)
  - WHEEZING [None]
